FAERS Safety Report 4504740-5 (Version None)
Quarter: 2004Q4

REPORT INFORMATION
  Report Type: 
  Country: None (occurrence: None)
  Receive Date: 20041118
  Receipt Date: 20041005
  Transmission Date: 20050328
  Serious: Yes (Hospitalization)
  Sender: FDA-Public Use
  Company Number: AU-MERCK-0410AUS00242

PATIENT
  Age: 61 Year
  Sex: Female
  Weight: 75 kg

DRUGS (6)
  1. VIOXX [Suspect]
     Indication: MONARTHRITIS
     Route: 048
     Dates: start: 20010607, end: 20040901
  2. CANDESARTAN CILEXETIL [Concomitant]
     Indication: BLOOD PRESSURE INCREASED
     Route: 065
  3. ACETAMINOPHEN AND ASPIRIN AND CAFFEINE AND HYDROCODONE BITARTRATE [Concomitant]
     Indication: PAIN
     Route: 065
  4. CELECOXIB [Concomitant]
     Indication: MONARTHRITIS
     Route: 048
     Dates: start: 20000101, end: 20010606
  5. ZOCOR [Concomitant]
     Indication: HYPERCHOLESTEROLAEMIA
     Route: 048
     Dates: start: 20020220
  6. PERINDOPRIL ERBUMINE [Concomitant]
     Route: 065
     Dates: start: 20020401

REACTIONS (5)
  - BLOOD PRESSURE INCREASED [None]
  - CHEST PAIN [None]
  - DERMATITIS [None]
  - DIZZINESS [None]
  - VASCULITIC RASH [None]
